FAERS Safety Report 7704070-4 (Version None)
Quarter: 2011Q3

REPORT INFORMATION
  Report Type: 
  Country: None (occurrence: None)
  Receive Date: 20110823
  Receipt Date: 20110811
  Transmission Date: 20111222
  Serious: Yes (Other)
  Sender: FDA-Public Use
  Company Number: CH-JNJFOC-20110806803

PATIENT
  Sex: Female
  Weight: 2.38 kg

DRUGS (2)
  1. REMICADE [Suspect]
     Indication: MATERNAL EXPOSURE DURING PREGNANCY
     Route: 064
     Dates: end: 20101201
  2. PREDNISONE TAB [Suspect]
     Indication: PROPHYLAXIS
     Route: 065
     Dates: end: 20101201

REACTIONS (2)
  - FOETAL GROWTH RESTRICTION [None]
  - MATERNAL DRUGS AFFECTING FOETUS [None]
